FAERS Safety Report 7338100-9 (Version None)
Quarter: 2011Q1

REPORT INFORMATION
  Report Type: 
  Country: None (occurrence: None)
  Receive Date: 20110308
  Receipt Date: 20110223
  Transmission Date: 20110831
  Serious: Yes (Other)
  Sender: FDA-Public Use
  Company Number: PHHY2011US15847

PATIENT

DRUGS (1)
  1. RECLAST [Suspect]

REACTIONS (1)
  - OSTEONECROSIS OF JAW [None]
